FAERS Safety Report 7432458-8 (Version None)
Quarter: 2011Q2

REPORT INFORMATION
  Report Type: 
  Country: None (occurrence: None)
  Receive Date: 20110414
  Receipt Date: 20110331
  Transmission Date: 20111010
  Serious: Yes (Death, Hospitalization)
  Sender: FDA-Public Use
  Company Number: 2011AT000034

PATIENT
  Age: 80 Year
  Sex: Female

DRUGS (3)
  1. SIMVASTATIN [Concomitant]
  2. ALPROSTADIL [Suspect]
     Indication: PRODUCT USED FOR UNKNOWN INDICATION
     Dosage: 2-3 VIALS/DAY
     Dates: start: 20101201, end: 20110101
  3. CLOPIDOGREL [Concomitant]

REACTIONS (4)
  - OEDEMA [None]
  - HEPATOMEGALY [None]
  - MYOCARDIAL INFARCTION [None]
  - BACK PAIN [None]
